FAERS Safety Report 25710147 (Version 1)
Quarter: 2025Q3

REPORT INFORMATION
  Report Type: Spontaneous
  Country: US (occurrence: US)
  Receive Date: 20250821
  Receipt Date: 20250821
  Transmission Date: 20251021
  Serious: No
  Sender: ROCHE
  Company Number: US-ROCHE-10000365359

PATIENT
  Sex: Male

DRUGS (1)
  1. OMALIZUMAB [Suspect]
     Active Substance: OMALIZUMAB
     Indication: Urticaria
     Route: 058
     Dates: start: 202502

REACTIONS (8)
  - Rash [Unknown]
  - Urticaria [Unknown]
  - Myalgia [Unknown]
  - Dysuria [Unknown]
  - Renal pain [Unknown]
  - Blood creatinine increased [Unknown]
  - Arthralgia [Unknown]
  - Rheumatoid arthritis [Unknown]
